FAERS Safety Report 19247079 (Version 2)
Quarter: 2021Q2

REPORT INFORMATION
  Report Type: Report from Study
  Country: US (occurrence: US)
  Receive Date: 20210512
  Receipt Date: 20210520
  Transmission Date: 20210717
  Serious: Yes (Hospitalization, Other)
  Sender: FDA-Public Use
  Company Number: US-ACCORD-225032

PATIENT
  Age: 61 Year
  Sex: Female

DRUGS (8)
  1. LEVOTHYROXINE. [Concomitant]
     Active Substance: LEVOTHYROXINE
     Dosage: SINCE 5 YEARS
     Route: 048
  2. SULFASALAZINE. [Concomitant]
     Active Substance: SULFASALAZINE
     Dosage: SINCE 2 YEARS
     Route: 048
  3. GABAPENTIN. [Concomitant]
     Active Substance: GABAPENTIN
     Dates: start: 2019
  4. TRAZODONE [Concomitant]
     Active Substance: TRAZODONE HYDROCHLORIDE
     Dates: start: 2020
  5. CLOZAPINE ACCORD [Suspect]
     Active Substance: CLOZAPINE
     Indication: SCHIZOPHRENIA
     Route: 048
     Dates: start: 20210120, end: 20210428
  6. TORASEMIDE [Concomitant]
     Active Substance: TORSEMIDE
     Indication: CARDIAC FAILURE
     Route: 048
     Dates: start: 202001
  7. LEFLUNOMIDE. [Concomitant]
     Active Substance: LEFLUNOMIDE
     Dates: start: 2019
  8. HALOPERIDOL. [Concomitant]
     Active Substance: HALOPERIDOL
     Indication: SCHIZOPHRENIA
     Route: 048
     Dates: start: 2012

REACTIONS (1)
  - Febrile neutropenia [Recovered/Resolved with Sequelae]

NARRATIVE: CASE EVENT DATE: 20210427
